FAERS Safety Report 9086168 (Version 1)
Quarter: 2013Q1

REPORT INFORMATION
  Report Type: Spontaneous
  Country: US (occurrence: US)
  Receive Date: 20130131
  Receipt Date: 20130131
  Transmission Date: 20140127
  Serious: No
  Sender: FDA-Public Use
  Company Number: US-ABBOTT-12P-163-1014469-00

PATIENT
  Age: 36 Year
  Sex: Male

DRUGS (2)
  1. HUMIRA [Suspect]
     Indication: COLITIS ULCERATIVE
     Route: 058
     Dates: start: 20121112
  2. HUMIRA [Suspect]
     Dates: start: 20121126

REACTIONS (1)
  - Rectal haemorrhage [Not Recovered/Not Resolved]
